FAERS Safety Report 10061541 (Version 1)
Quarter: 2014Q2

REPORT INFORMATION
  Report Type: Spontaneous
  Country: US (occurrence: US)
  Receive Date: 20140407
  Receipt Date: 20140407
  Transmission Date: 20141212
  Serious: Yes (Hospitalization)
  Sender: FDA-Public Use
  Company Number: US-ROCHE-1377615

PATIENT
  Age: 67 Year
  Sex: Male
  Weight: 100.79 kg

DRUGS (1)
  1. XELODA [Suspect]
     Indication: GASTRIC CANCER
     Route: 048
     Dates: start: 20130809

REACTIONS (2)
  - Cholecystectomy [Recovered/Resolved]
  - Thrombosis [Recovered/Resolved]
